FAERS Safety Report 7110584-0 (Version None)
Quarter: 2010Q4

REPORT INFORMATION
  Report Type: 
  Country: None (occurrence: None)
  Receive Date: 20101118
  Receipt Date: 20101109
  Transmission Date: 20110411
  Serious: Yes (Other)
  Sender: FDA-Public Use
  Company Number: DE-JNJFOC-20101103091

PATIENT
  Sex: Male
  Weight: 60 kg

DRUGS (2)
  1. HALDOL JANSSEN FORTE [Suspect]
     Indication: ILL-DEFINED DISORDER
     Route: 048
     Dates: start: 20101109, end: 20101109
  2. ALCOHOL [Suspect]
     Indication: ILL-DEFINED DISORDER
     Route: 048
     Dates: start: 20101109, end: 20101109

REACTIONS (3)
  - ALCOHOL POISONING [None]
  - MULTIPLE DRUG OVERDOSE INTENTIONAL [None]
  - SUICIDE ATTEMPT [None]
